FAERS Safety Report 15434865 (Version 1)
Quarter: 2018Q3

REPORT INFORMATION
  Report Type: Spontaneous
  Country: CN (occurrence: CN)
  Receive Date: 20180927
  Receipt Date: 20180927
  Transmission Date: 20181010
  Serious: Yes (Hospitalization)
  Sender: FDA-Public Use
  Company Number: CN-STRIDES ARCOLAB LIMITED-2018SP008333

PATIENT

DRUGS (4)
  1. RIFAMPICIN [Concomitant]
     Active Substance: RIFAMPIN
     Indication: STAPHYLOCOCCAL INFECTION
     Dosage: UNK
     Route: 065
  2. PANIPENEM [Concomitant]
     Active Substance: PANIPENEM
     Indication: STAPHYLOCOCCAL INFECTION
     Dosage: UNK
     Route: 065
  3. VANCOMYCIN [Suspect]
     Active Substance: VANCOMYCIN
     Indication: STAPHYLOCOCCAL INFECTION
     Dosage: UNK
     Route: 042
  4. MEROPENEM. [Concomitant]
     Active Substance: MEROPENEM
     Indication: STAPHYLOCOCCAL INFECTION
     Dosage: UNK
     Route: 065

REACTIONS (1)
  - Leukopenia [Recovered/Resolved]
